FAERS Safety Report 5254591-1 (Version None)
Quarter: 2007Q1

REPORT INFORMATION
  Report Type: 
  Country: None (occurrence: None)
  Receive Date: 20070302
  Receipt Date: 20070219
  Transmission Date: 20070707
  Serious: Yes (Other)
  Sender: FDA-Public Use
  Company Number: IN-PFIZER INC-2007013907

PATIENT
  Age: 24 Year
  Sex: Female

DRUGS (1)
  1. DEPO-PROVERA [Suspect]
     Indication: CONTRACEPTION
     Route: 030

REACTIONS (4)
  - AMENORRHOEA [None]
  - HYPERTHYROIDISM [None]
  - LOCAL SWELLING [None]
  - SWELLING FACE [None]
